FAERS Safety Report 16923804 (Version 2)
Quarter: 2020Q3

REPORT INFORMATION
  Report Type: Report from Study
  Country: TH (occurrence: TH)
  Receive Date: 20191016
  Receipt Date: 20200904
  Transmission Date: 20201102
  Serious: Yes (Death)
  Sender: FDA-Public Use
  Company Number: NVSC2019TH000488

PATIENT
  Sex: Male

DRUGS (1)
  1. ENTRESTO [Suspect]
     Active Substance: SACUBITRIL\VALSARTAN
     Indication: CARDIAC FAILURE
     Dosage: 200 MG, UNKNOWN
     Route: 048
     Dates: start: 20190114

REACTIONS (2)
  - Cardiac disorder [Fatal]
  - Acute kidney injury [Fatal]
